FAERS Safety Report 13849792 (Version 2)
Quarter: 2017Q3

REPORT INFORMATION
  Report Type: Spontaneous
  Country: US (occurrence: US)
  Receive Date: 20170809
  Receipt Date: 20170906
  Transmission Date: 20171127
  Serious: No
  Sender: FDA-Public Use
  Company Number: US-TEVA-794622ACC

PATIENT
  Sex: Female

DRUGS (4)
  1. PRES PLUS [Concomitant]
  2. PARAGARD T 380A [Suspect]
     Active Substance: COPPER
     Indication: CONTRACEPTION
     Dates: start: 201611
  3. SEROQUEL [Concomitant]
     Active Substance: QUETIAPINE FUMARATE
  4. IRON [Concomitant]
     Active Substance: IRON

REACTIONS (1)
  - Device breakage [Recovering/Resolving]
